FAERS Safety Report 7261772-4 (Version None)
Quarter: 2011Q1

REPORT INFORMATION
  Report Type: 
  Country: None (occurrence: None)
  Receive Date: 20110130
  Receipt Date: 20101104
  Transmission Date: 20110831
  Serious: No
  Sender: FDA-Public Use
  Company Number: US-ABBOTT-10P-163-0683313-00

PATIENT
  Age: 46 Year
  Sex: Female

DRUGS (10)
  1. SOMA [Concomitant]
     Indication: MUSCLE SPASMS
     Route: 048
  2. FLUTICASONE PROPIONATE [Concomitant]
     Indication: SINUS DISORDER
     Dosage: NASAL SPRAY
     Route: 045
  3. PLAQUENIL [Concomitant]
     Indication: RHEUMATOID ARTHRITIS
     Route: 048
  4. PERCOCET [Concomitant]
     Indication: PAIN
     Dosage: 10/325 MG 4 TABLETS DAILY
     Route: 048
  5. METHOTREXATE [Concomitant]
     Indication: RHEUMATOID ARTHRITIS
     Dosage: 6 TABLETS PER WEEK
     Route: 048
  6. XANAX [Concomitant]
     Indication: STRESS
     Route: 048
  7. FOLIC ACID [Concomitant]
     Indication: PRODUCT USED FOR UNKNOWN INDICATION
     Route: 048
  8. HUMIRA [Suspect]
     Indication: RHEUMATOID ARTHRITIS
     Dates: start: 20100923
  9. ALLEGRA [Concomitant]
     Indication: HYPERSENSITIVITY
     Route: 048
  10. ALBUTEROL [Concomitant]
     Indication: ASTHMA

REACTIONS (3)
  - JOINT SWELLING [None]
  - RHEUMATOID ARTHRITIS [None]
  - INJECTION SITE PAIN [None]
